FAERS Safety Report 14246172 (Version 2)
Quarter: 2018Q3

REPORT INFORMATION
  Report Type: Spontaneous
  Country: PK (occurrence: PK)
  Receive Date: 20171204
  Receipt Date: 20180716
  Transmission Date: 20181010
  Serious: Yes (Death)
  Sender: FDA-Public Use
  Company Number: PK-ROCHE-2033544

PATIENT
  Age: 65 Year
  Sex: Male

DRUGS (1)
  1. BONVIVA [Suspect]
     Active Substance: IBANDRONATE SODIUM
     Indication: OSTEOPOROSIS
     Route: 042

REACTIONS (1)
  - Metastatic neoplasm [Fatal]

NARRATIVE: CASE EVENT DATE: 20171014
